FAERS Safety Report 6152676-9 (Version None)
Quarter: 2009Q2

REPORT INFORMATION
  Report Type: 
  Country: None (occurrence: None)
  Receive Date: 20090413
  Receipt Date: 20090407
  Transmission Date: 20091009
  Serious: Yes (Life-Threatening, Hospitalization)
  Sender: FDA-Public Use
  Company Number: FI-ROCHE-618881

PATIENT
  Sex: Male

DRUGS (4)
  1. XELODA [Suspect]
     Route: 048
     Dates: start: 20090119, end: 20090222
  2. AVASTIN [Suspect]
     Dosage: DOSAGE FORM : INFUSION
     Route: 042
     Dates: start: 20090119, end: 20090210
  3. CARDACE COMP [Concomitant]
     Indication: HYPERTENSION
     Dosage: DOSING AMOUNT : 2.5+12.5 MG SART DATE : 15 YEARS AGO
  4. IRINOTECAN HCL [Concomitant]
     Dosage: DOSAGE FORM : INFUSION
     Dates: start: 20090119, end: 20090210

REACTIONS (3)
  - CONFUSIONAL STATE [None]
  - FEBRILE INFECTION [None]
  - VENTRICULAR FIBRILLATION [None]
